FAERS Safety Report 18630947 (Version 1)
Quarter: 2020Q4

REPORT INFORMATION
  Report Type: Spontaneous
  Country: GB (occurrence: GB)
  Receive Date: 20201218
  Receipt Date: 20201218
  Transmission Date: 20210114
  Serious: Yes (Other)
  Sender: FDA-Public Use
  Company Number: GB-SA-2020SA360429

PATIENT

DRUGS (1)
  1. SARILUMAB [Suspect]
     Active Substance: SARILUMAB
     Indication: RHEUMATOID ARTHRITIS
     Dosage: 200 MG
     Route: 058
     Dates: start: 202010, end: 202010

REACTIONS (7)
  - Pruritus [Recovering/Resolving]
  - Scar [Unknown]
  - Erythema [Recovering/Resolving]
  - Vaginal haemorrhage [Recovering/Resolving]
  - Post inflammatory pigmentation change [Unknown]
  - Skin atrophy [Unknown]
  - Dermatitis allergic [Recovering/Resolving]

NARRATIVE: CASE EVENT DATE: 202010
